FAERS Safety Report 10053142 (Version 1)
Quarter: 2014Q2

REPORT INFORMATION
  Report Type: Report from Study
  Country: FR (occurrence: FR)
  Receive Date: 20140402
  Receipt Date: 20140402
  Transmission Date: 20141212
  Serious: Yes (Other)
  Sender: FDA-Public Use
  Company Number: PHHY2014FR036861

PATIENT
  Age: 59 Year
  Sex: Female
  Weight: 52 kg

DRUGS (1)
  1. ICL670A [Suspect]
     Indication: MYELODYSPLASTIC SYNDROME
     Dosage: 1500 MG, DAILY
     Route: 048
     Dates: start: 20130329, end: 20130620

REACTIONS (4)
  - Fall [Recovered/Resolved]
  - Tooth fracture [Recovered/Resolved]
  - Vertigo [Recovered/Resolved]
  - Contusion [Recovered/Resolved]
